FAERS Safety Report 11708697 (Version 1)
Quarter: 2015Q4

REPORT INFORMATION
  Report Type: Spontaneous
  Country: US (occurrence: US)
  Receive Date: 20151104
  Receipt Date: 20151104
  Transmission Date: 20160304
  Serious: No
  Sender: FDA-Public Use
  Company Number: US-ELI_LILLY_AND_COMPANY-US201103002557

PATIENT
  Age: 75 Year
  Sex: Female

DRUGS (2)
  1. CALTRATE +D [Concomitant]
  2. FORTEO [Suspect]
     Active Substance: TERIPARATIDE
     Indication: OSTEOPOROSIS
     Dosage: 20 UG, DAILY (1/D)
     Dates: start: 20100424

REACTIONS (6)
  - Dry skin [Unknown]
  - Scratch [Unknown]
  - Pain of skin [Unknown]
  - Pruritus [Unknown]
  - Hyperhidrosis [Unknown]
  - Rash [Unknown]

NARRATIVE: CASE EVENT DATE: 201012
